FAERS Safety Report 7676699-3 (Version None)
Quarter: 2011Q3

REPORT INFORMATION
  Report Type: 
  Country: None (occurrence: None)
  Receive Date: 20110809
  Receipt Date: 20110809
  Transmission Date: 20111222
  Serious: Yes (Life-Threatening)
  Sender: FDA-Public Use
  Company Number: None

PATIENT
  Sex: Male
  Weight: 102.0593 kg

DRUGS (1)
  1. PRADAXA [Suspect]
     Indication: THROMBOSIS
     Dosage: NORMAL ? 2X PER DAY ORAL; NORMAL 1X PER DAY ORAL
     Route: 048

REACTIONS (3)
  - HAEMOGLOBIN DECREASED [None]
  - BRAIN NEOPLASM [None]
  - RENAL HAEMORRHAGE [None]
